FAERS Safety Report 13725734 (Version 1)
Quarter: 2017Q3

REPORT INFORMATION
  Report Type: Spontaneous
  Country: US (occurrence: US)
  Receive Date: 20170706
  Receipt Date: 20170706
  Transmission Date: 20171127
  Serious: Yes (Hospitalization)
  Sender: FDA-Public Use
  Company Number: None

PATIENT
  Age: 65 Year
  Sex: Male
  Weight: 86.18 kg

DRUGS (1)
  1. CUBICIN RF [Suspect]
     Active Substance: DAPTOMYCIN
     Indication: STAPHYLOCOCCAL INFECTION
     Dosage: ?          OTHER DOSE:MG;?
     Route: 042
     Dates: start: 20170619, end: 20170705

REACTIONS (3)
  - Body temperature increased [None]
  - Hepatic enzyme increased [None]
  - Product quality issue [None]

NARRATIVE: CASE EVENT DATE: 20170705
